FAERS Safety Report 11098197 (Version 1)
Quarter: 2015Q2

REPORT INFORMATION
  Report Type: Spontaneous
  Country: CA (occurrence: CA)
  Receive Date: 20150507
  Receipt Date: 20150507
  Transmission Date: 20150821
  Serious: Yes (Hospitalization, Other)
  Sender: FDA-Public Use
  Company Number: PHHY2015CA050228

PATIENT
  Age: 28 Year
  Sex: Male

DRUGS (3)
  1. DONEPEZIL [Suspect]
     Active Substance: DONEPEZIL
     Dosage: 15 MG
     Route: 065
  2. DONEPEZIL [Suspect]
     Active Substance: DONEPEZIL
     Indication: COGNITIVE DISORDER
     Dosage: 5 MG,
     Route: 065
  3. DONEPEZIL [Suspect]
     Active Substance: DONEPEZIL
     Dosage: 10 MG
     Route: 065

REACTIONS (12)
  - Mania [Recovered/Resolved]
  - Psychomotor hyperactivity [Recovered/Resolved]
  - Intentional product misuse [Recovered/Resolved]
  - Inappropriate affect [Recovered/Resolved]
  - Abnormal behaviour [Recovered/Resolved]
  - Obsessive thoughts [Recovered/Resolved]
  - Pressure of speech [Recovered/Resolved]
  - Diarrhoea [Recovered/Resolved]
  - Sleep disorder [Recovered/Resolved]
  - Agitation [Recovered/Resolved]
  - Drug diversion [Recovered/Resolved]
  - Flight of ideas [Recovered/Resolved]
